FAERS Safety Report 5535394-7 (Version None)
Quarter: 2007Q4

REPORT INFORMATION
  Report Type: 
  Country: None (occurrence: None)
  Receive Date: 20071206
  Receipt Date: 20071123
  Transmission Date: 20080405
  Serious: Yes (Hospitalization, Other)
  Sender: FDA-Public Use
  Company Number: GB-PFIZER INC-2007099008

PATIENT
  Sex: Female

DRUGS (4)
  1. AZITHROMYCIN [Suspect]
     Indication: ANTIINFLAMMATORY THERAPY
  2. GENTAMICIN [Suspect]
     Indication: LUNG DISORDER
     Route: 042
  3. MEROPENEM [Suspect]
  4. TOBRAMYCIN [Suspect]
     Indication: CYSTIC FIBROSIS

REACTIONS (8)
  - BALANCE DISORDER [None]
  - CONDITION AGGRAVATED [None]
  - CYSTIC FIBROSIS [None]
  - DEAFNESS NEUROSENSORY [None]
  - DIZZINESS [None]
  - DRUG TOXICITY [None]
  - RENAL FAILURE ACUTE [None]
  - TINNITUS [None]
